FAERS Safety Report 10245316 (Version 3)
Quarter: 2014Q4

REPORT INFORMATION
  Report Type: Report from Study
  Country: DE (occurrence: DE)
  Receive Date: 20140618
  Receipt Date: 20141110
  Transmission Date: 20150528
  Serious: Yes (Hospitalization)
  Sender: FDA-Public Use
  Company Number: DE-INCYTE CORPORATION-2014IN001660

PATIENT
  Sex: Female
  Weight: 58 kg

DRUGS (13)
  1. LITALIR [Concomitant]
     Active Substance: HYDROXYUREA
     Indication: MYELOFIBROSIS
     Dosage: UNK
     Route: 065
     Dates: start: 20140610, end: 20140715
  2. INCB018424 [Suspect]
     Active Substance: RUXOLITINIB
     Dosage: 5 MG, 2 DF PER DAY
     Route: 048
     Dates: start: 20140716, end: 20140719
  3. PARACODIN                               /GFR/ [Concomitant]
     Route: 065
     Dates: start: 20140627, end: 20140707
  4. INCB018424 [Suspect]
     Active Substance: RUXOLITINIB
     Indication: MYELOFIBROSIS
     Dosage: 20MG 2 DF PER DAY
     Route: 048
     Dates: start: 20121107, end: 20140606
  5. INCB018424 [Suspect]
     Active Substance: RUXOLITINIB
     Dosage: 5 MG, 3 DF, PER DAY
     Route: 048
     Dates: start: 20140720, end: 20140722
  6. INCB018424 [Suspect]
     Active Substance: RUXOLITINIB
     Dosage: 5 MG, 4 DF, PER DAY
     Route: 048
     Dates: start: 20140723, end: 20140725
  7. INCB018424 [Suspect]
     Active Substance: RUXOLITINIB
     Dosage: 5 MG, 5 DF, PER DAY
     Route: 048
     Dates: start: 20140726, end: 20140729
  8. INCB018424 [Suspect]
     Active Substance: RUXOLITINIB
     Dosage: 5 MG, 6 DF, PER DAY
     Route: 048
     Dates: start: 20140730, end: 20140909
  9. ASPIRIN. [Concomitant]
     Active Substance: ASPIRIN
     Dosage: UNK
  10. INCB018424 [Suspect]
     Active Substance: RUXOLITINIB
     Dosage: 25 MG, ALTERNATELY WITH 30 MG EACH DAY
     Route: 048
     Dates: start: 20140917
  11. ALLOPURINOL. [Concomitant]
     Active Substance: ALLOPURINOL
     Indication: BLOOD URIC ACID INCREASED
     Dosage: UNK
     Route: 065
     Dates: start: 20121113
  12. INCB018424 [Suspect]
     Active Substance: RUXOLITINIB
     Dosage: 5 MG, 1 DF PER DAY
     Route: 048
     Dates: start: 20140708, end: 20140715
  13. INCB018424 [Suspect]
     Active Substance: RUXOLITINIB
     Dosage: 5 MG, 5 DF, PER DAY
     Route: 048
     Dates: start: 20140910, end: 20140916

REACTIONS (3)
  - Pyrexia [Recovered/Resolved]
  - Diarrhoea [Recovered/Resolved]
  - General physical health deterioration [Recovered/Resolved]

NARRATIVE: CASE EVENT DATE: 20140606
